FAERS Safety Report 21450845 (Version 1)
Quarter: 2022Q4

REPORT INFORMATION
  Report Type: Spontaneous
  Country: US (occurrence: None)
  Receive Date: 20221012
  Receipt Date: 20221012
  Transmission Date: 20230112
  Serious: Yes (Disabling, Other)
  Sender: FDA-Public Use
  Company Number: None

PATIENT

DRUGS (1)
  1. MOXIFLOXACIN [Suspect]
     Active Substance: MOXIFLOXACIN
     Indication: Thrombosis

REACTIONS (5)
  - Paraesthesia [None]
  - Thrombosis [None]
  - Dyskinesia [None]
  - Toothache [None]
  - Arthralgia [None]

NARRATIVE: CASE EVENT DATE: 20220802
